FAERS Safety Report 22185627 (Version 1)
Quarter: 2023Q2

REPORT INFORMATION
  Report Type: Other
  Country: BR (occurrence: None)
  Receive Date: 20230407
  Receipt Date: 20230407
  Transmission Date: 20230721
  Serious: Yes (Other)
  Sender: FDA-Public Use
  Company Number: BR-ROCHE-3325762

PATIENT
  Age: 61 Year
  Sex: Female
  Weight: 70 kg

DRUGS (2)
  1. ACTEMRA [Suspect]
     Active Substance: TOCILIZUMAB
     Indication: Rheumatoid arthritis
     Dosage: DATE OF TREATMENT: 07/NOV/2022
     Route: 042
     Dates: start: 20220126, end: 20221107
  2. PREDNISONE [Concomitant]
     Active Substance: PREDNISONE
     Indication: Rheumatoid arthritis

REACTIONS (9)
  - Diabetes mellitus [Unknown]
  - Malaise [Recovering/Resolving]
  - Illness [Recovering/Resolving]
  - Pain in extremity [Recovering/Resolving]
  - Arthralgia [Recovering/Resolving]
  - Limb injury [Recovered/Resolved]
  - Burning sensation [Recovered/Resolved]
  - Wound complication [Recovered/Resolved]
  - Pyrexia [Recovered/Resolved]
